FAERS Safety Report 7991515-8 (Version None)
Quarter: 2011Q4

REPORT INFORMATION
  Report Type: 
  Country: None (occurrence: None)
  Receive Date: 20111219
  Receipt Date: 20111214
  Transmission Date: 20120403
  Serious: Yes (Hospitalization)
  Sender: FDA-Public Use
  Company Number: FR-EISAI INC-E2090-01906-SPO-FR

PATIENT
  Sex: Male

DRUGS (4)
  1. ZONEGRAN [Suspect]
     Indication: EPILEPSY
     Route: 048
     Dates: start: 20080201, end: 20100801
  2. URBANYL [Suspect]
     Dosage: 5 MG AM/ 10 MG PM (15 MG/DAY)
     Route: 048
  3. DEPAKENE [Suspect]
     Route: 048
     Dates: start: 20100401
  4. ZONEGRAN [Suspect]
     Route: 048
     Dates: start: 20100801

REACTIONS (3)
  - FRONTOTEMPORAL DEMENTIA [None]
  - FAECAL INCONTINENCE [None]
  - URINARY INCONTINENCE [None]
